FAERS Safety Report 8622198 (Version 2)
Quarter: 2012Q4

REPORT INFORMATION
  Report Type: 
  Country: PL (occurrence: PL)
  Receive Date: 20120619
  Receipt Date: 20121009
  Transmission Date: 20130627
  Serious: Yes (Other)
  Sender: FDA-Public Use
  Company Number: PL-ROCHE-1077024

PATIENT
  Age: 62 Year
  Sex: Female

DRUGS (4)
  1. XELODA [Suspect]
     Indication: BREAST CANCER METASTATIC
     Route: 048
     Dates: start: 200605, end: 200609
  2. XELODA [Suspect]
     Dosage: FOR 14 DAYS, EVERY 21 DAYS
     Route: 048
     Dates: start: 200710, end: 200809
  3. TAMOXIFEN [Suspect]
     Indication: PRODUCT USED FOR UNKNOWN INDICATION
  4. LETROZOLE [Concomitant]
     Route: 065
     Dates: start: 200709, end: 200811

REACTIONS (6)
  - General physical health deterioration [Unknown]
  - Anaemia [Unknown]
  - Palmar-plantar erythrodysaesthesia syndrome [Recovered/Resolved]
  - Pleural effusion [Unknown]
  - Metastasis [Unknown]
  - Bone pain [Recovering/Resolving]
